FAERS Safety Report 8816396 (Version 1)
Quarter: 2012Q4

REPORT INFORMATION
  Report Type: Spontaneous
  Country: DE (occurrence: None)
  Receive Date: 20120927
  Receipt Date: 20120927
  Transmission Date: 20130627
  Serious: Yes (Other)
  Sender: FDA-Public Use
  Company Number: 1418436

PATIENT
  Age: 55 Year
  Sex: Male
  Weight: 80.7 kg

DRUGS (10)
  1. OXALIPLATIN [Suspect]
     Indication: NEOPLASM
     Route: 042
     Dates: start: 20120824, end: 20120824
  2. OXALIPLATIN [Suspect]
     Indication: NEOPLASM
     Route: 042
     Dates: start: 20120824, end: 20120824
  3. OXALIPLATIN [Suspect]
     Indication: NEOPLASM
     Route: 042
     Dates: start: 20120827, end: 20120827
  4. OXALIPLATIN [Suspect]
     Indication: NEOPLASM
     Route: 042
     Dates: start: 20120827, end: 20120827
  5. GLUCOSE [Suspect]
     Route: 042
     Dates: start: 20120824
  6. GLUCOSE [Suspect]
     Route: 042
     Dates: start: 20120824
  7. GLUCOSE [Suspect]
     Route: 042
     Dates: start: 20120827
  8. GLUCOSE [Suspect]
     Route: 042
     Dates: start: 20120827
  9. FOLINIC ACID [Concomitant]
  10. FLUOROURACIL [Concomitant]

REACTIONS (3)
  - Rash [None]
  - Pruritus [None]
  - Restlessness [None]
